FAERS Safety Report 5904842-2 (Version None)
Quarter: 2008Q4

REPORT INFORMATION
  Report Type: 
  Country: None (occurrence: None)
  Receive Date: 20081001
  Receipt Date: 20080926
  Transmission Date: 20090506
  Serious: Yes (Hospitalization)
  Sender: FDA-Public Use
  Company Number: A0709947A

PATIENT
  Age: 52 Year
  Sex: Male
  Weight: 150 kg

DRUGS (14)
  1. AVANDIA [Suspect]
     Indication: DIABETES MELLITUS
     Dosage: 4MG TWICE PER DAY
     Route: 048
     Dates: start: 20020318, end: 20060101
  2. METFORMIN HCL [Concomitant]
  3. INSULIN [Concomitant]
  4. METOPROLOL TARTRATE [Concomitant]
     Dates: start: 20030101
  5. HYDROCHLOROTHIAZIDE [Concomitant]
  6. POTASSIUM CHLORIDE [Concomitant]
  7. DILTIAZEM HCL [Concomitant]
  8. LISINOPRIL [Concomitant]
  9. HYDRALAZINE HCL [Concomitant]
  10. OMEPRAZOLE [Concomitant]
  11. FOSINOPRIL SODIUM [Concomitant]
  12. TRAMADOL HCL [Concomitant]
  13. RABEPRAZOLE SODIUM [Concomitant]
  14. RANITIDINE [Concomitant]

REACTIONS (3)
  - CARDIAC FAILURE CONGESTIVE [None]
  - CARDIOVASCULAR DISORDER [None]
  - MYOCARDIAL INFARCTION [None]
